FAERS Safety Report 10055288 (Version 1)
Quarter: 2014Q2

REPORT INFORMATION
  Report Type: Spontaneous
  Country: US (occurrence: US)
  Receive Date: 20140403
  Receipt Date: 20140403
  Transmission Date: 20141212
  Serious: No
  Sender: FDA-Public Use
  Company Number: US-009507513-1403USA010746

PATIENT
  Age: 23 Year
  Sex: Female
  Weight: 63.49 kg

DRUGS (1)
  1. IMPLANON [Suspect]
     Indication: CONTRACEPTION
     Dosage: 3 YEAR IMPLANT,IMPLANT IN LEFT ARM
     Dates: start: 20120828

REACTIONS (3)
  - Headache [Unknown]
  - Menorrhagia [Unknown]
  - Exposure during breast feeding [Unknown]
